FAERS Safety Report 12699986 (Version 1)
Quarter: 2016Q3

REPORT INFORMATION
  Report Type: Spontaneous
  Country: US (occurrence: US)
  Receive Date: 20160830
  Receipt Date: 20160830
  Transmission Date: 20161109
  Serious: No
  Sender: FDA-Public Use
  Company Number: US-BAYER-2016-160163

PATIENT
  Sex: Female
  Weight: 46.26 kg

DRUGS (1)
  1. MIRALAX [Suspect]
     Active Substance: POLYETHYLENE GLYCOL 3350
     Dosage: 1 TABLESPOON, QD
     Route: 048
     Dates: start: 201607

REACTIONS (6)
  - Feeling abnormal [None]
  - Abnormal faeces [None]
  - Incorrect dose administered [None]
  - Prescribed underdose [None]
  - Diarrhoea [Not Recovered/Not Resolved]
  - Muscle spasms [None]

NARRATIVE: CASE EVENT DATE: 201607
